FAERS Safety Report 21197750 (Version 1)
Quarter: 2022Q3

REPORT INFORMATION
  Report Type: Spontaneous
  Country: US (occurrence: US)
  Receive Date: 20220810
  Receipt Date: 20220810
  Transmission Date: 20221027
  Serious: Yes (Other)
  Sender: FDA-Public Use
  Company Number: US-GILEAD-2022-0592643

PATIENT
  Age: 74 Year
  Sex: Male
  Weight: 78.1 kg

DRUGS (1)
  1. TECARTUS [Suspect]
     Active Substance: BREXUCABTAGENE AUTOLEUCEL
     Indication: Mantle cell lymphoma
     Dosage: UNK
     Route: 042
     Dates: start: 20220518

REACTIONS (1)
  - Neurotoxicity [Recovered/Resolved]

NARRATIVE: CASE EVENT DATE: 20220523
